FAERS Safety Report 9843201 (Version 2)
Quarter: 2014Q2

REPORT INFORMATION
  Report Type: Spontaneous
  Country: US (occurrence: US)
  Receive Date: 20140124
  Receipt Date: 20140429
  Transmission Date: 20141212
  Serious: Yes (Hospitalization)
  Sender: FDA-Public Use
  Company Number: US-GILEAD-2014-0092872

PATIENT
  Age: 76 Year
  Sex: Female

DRUGS (6)
  1. LETAIRIS [Suspect]
     Indication: DECREASED APPETITE
     Dosage: 10 MG, UNK
     Route: 065
     Dates: start: 20090814
  2. LETAIRIS [Suspect]
     Indication: PULMONARY HYPERTENSION
  3. TYVASO [Concomitant]
  4. ADCIRCA [Concomitant]
  5. WARFARIN [Concomitant]
  6. LASIX                              /00032601/ [Concomitant]

REACTIONS (1)
  - Fall [Recovered/Resolved]
